FAERS Safety Report 17419412 (Version 3)
Quarter: 2020Q4

REPORT INFORMATION
  Report Type: Report from Study
  Country: None (occurrence: US)
  Receive Date: 20200214
  Receipt Date: 20201230
  Transmission Date: 20210113
  Serious: Yes (Death)
  Sender: FDA-Public Use
  Company Number: US-ABBVIE-20K-163-3277191-00

PATIENT
  Age: 51 Year
  Sex: Male

DRUGS (3)
  1. VENCLEXTA [Suspect]
     Active Substance: VENETOCLAX
     Indication: MYELODYSPLASTIC SYNDROME
     Dosage: DAY 2
     Route: 048
     Dates: start: 2019
  2. VENCLEXTA [Suspect]
     Active Substance: VENETOCLAX
     Indication: REFRACTORY CYTOPENIA WITH MULTILINEAGE DYSPLASIA
     Route: 048
     Dates: start: 2019
  3. VENCLEXTA [Suspect]
     Active Substance: VENETOCLAX
     Indication: REFRACTORY CYTOPENIA WITH UNILINEAGE DYSPLASIA
     Route: 048
     Dates: start: 2019

REACTIONS (2)
  - Death [Fatal]
  - Off label use [Unknown]

NARRATIVE: CASE EVENT DATE: 20191016
